FAERS Safety Report 23675051 (Version 2)
Quarter: 2024Q3

REPORT INFORMATION
  Report Type: Report from Study
  Country: BR (occurrence: BR)
  Receive Date: 20240326
  Receipt Date: 20240814
  Transmission Date: 20241016
  Serious: Yes (Life-Threatening, Hospitalization, Other)
  Sender: NOVARTIS
  Company Number: BR-002147023-NVSC2024BR064303

PATIENT
  Sex: Female

DRUGS (1)
  1. KISQALI [Suspect]
     Active Substance: RIBOCICLIB
     Indication: Product used for unknown indication
     Dosage: UNK
     Route: 065

REACTIONS (7)
  - Near death experience [Recovered/Resolved]
  - Liver injury [Recovering/Resolving]
  - Malaise [Recovered/Resolved]
  - Hepatitis [Unknown]
  - Dyspepsia [Unknown]
  - Dizziness [Unknown]
  - Drug intolerance [Unknown]
